FAERS Safety Report 4431198-7 (Version None)
Quarter: 2004Q3

REPORT INFORMATION
  Report Type: 
  Country: None (occurrence: None)
  Receive Date: 20040817
  Receipt Date: 20040804
  Transmission Date: 20050211
  Serious: Yes (Other)
  Sender: FDA-Public Use
  Company Number: GB-2004-030033

PATIENT
  Age: 59 Year
  Sex: Male
  Weight: 73 kg

DRUGS (3)
  1. SOTALOL HCL [Suspect]
     Indication: ATRIAL FIBRILLATION
     Dosage: 40 MG/D, ORAL
     Route: 048
     Dates: start: 20040604, end: 20040615
  2. VALPROATE SODIUM [Concomitant]
  3. ASPIRIN [Concomitant]

REACTIONS (1)
  - PSORIASIS [None]
